FAERS Safety Report 10898757 (Version 1)
Quarter: 2015Q1

REPORT INFORMATION
  Report Type: Spontaneous
  Country: US (occurrence: None)
  Receive Date: 20150303
  Receipt Date: 20150303
  Transmission Date: 20150721
  Serious: No
  Sender: FDA-Public Use
  Company Number: None

PATIENT
  Age: 75 Year
  Sex: Male
  Weight: 78.02 kg

DRUGS (1)
  1. LUPRON DEPOT [Suspect]
     Active Substance: LEUPROLIDE ACETATE
     Indication: PROSTATE CANCER
     Dosage: 7.5 MG FOR 1 MO. ADMINISTRATION  BY INJECTION
     Dates: start: 20141005

REACTIONS (6)
  - Rash [None]
  - Drug hypersensitivity [None]
  - Back pain [None]
  - Arthralgia [None]
  - Insomnia [None]
  - Gait disturbance [None]

NARRATIVE: CASE EVENT DATE: 20150205
